FAERS Safety Report 9948734 (Version 4)
Quarter: 2014Q2

REPORT INFORMATION
  Report Type: Spontaneous
  Country: RS (occurrence: RS)
  Receive Date: 20140303
  Receipt Date: 20140411
  Transmission Date: 20141212
  Serious: Yes (Hospitalization)
  Sender: FDA-Public Use
  Company Number: RS-ROCHE-1356340

PATIENT
  Age: 64 Year
  Sex: Female
  Weight: 59 kg

DRUGS (10)
  1. MABTHERA [Suspect]
     Indication: RHEUMATOID ARTHRITIS
     Dosage: 2X1000 MG DAILY
     Route: 041
     Dates: start: 201101
  2. METHOTREXATE [Suspect]
     Indication: RHEUMATOID ARTHRITIS
     Route: 048
     Dates: start: 2004
  3. ETANERCEPT [Suspect]
     Indication: RHEUMATOID ARTHRITIS
     Route: 058
     Dates: start: 2007, end: 2008
  4. FOLIC ACID [Concomitant]
     Route: 048
     Dates: start: 2004
  5. DICLOFENAC [Concomitant]
     Indication: RHEUMATOID ARTHRITIS
     Route: 048
     Dates: start: 2005
  6. ENALAPRIL [Concomitant]
     Indication: HYPERTENSION
     Route: 048
     Dates: start: 2010
  7. BISOPROLOL [Concomitant]
     Indication: HYPERTENSION
     Route: 048
     Dates: start: 2011
  8. ALENDRONAT [Concomitant]
     Indication: OSTEOPOROSIS
     Route: 048
     Dates: start: 2011
  9. METHOTREXATE [Concomitant]
     Route: 065
  10. FOLAN [Concomitant]
     Route: 065

REACTIONS (1)
  - Ulcerative keratitis [Recovered/Resolved]
